FAERS Safety Report 14248658 (Version 1)
Quarter: 2017Q4

REPORT INFORMATION
  Report Type: Spontaneous
  Country: US (occurrence: US)
  Receive Date: 20171203
  Receipt Date: 20171203
  Transmission Date: 20180321
  Serious: Yes (Hospitalization)
  Sender: FDA-Public Use
  Company Number: None

PATIENT
  Age: 60 Year
  Sex: Male
  Weight: 103.5 kg

DRUGS (1)
  1. LISINOPRIL. [Suspect]
     Active Substance: LISINOPRIL
     Indication: BLOOD PRESSURE MEASUREMENT
     Dosage: ?          QUANTITY:1 TABLET(S);?
     Route: 048

REACTIONS (6)
  - Chills [None]
  - Tremor [None]
  - Wheezing [None]
  - Dyspnoea [None]
  - Dyspepsia [None]
  - Body temperature decreased [None]

NARRATIVE: CASE EVENT DATE: 20171201
